FAERS Safety Report 6999327-9 (Version None)
Quarter: 2010Q3

REPORT INFORMATION
  Report Type: 
  Country: None (occurrence: None)
  Receive Date: 20100920
  Receipt Date: 20100208
  Transmission Date: 20110219
  Serious: Yes (Other)
  Sender: FDA-Public Use
  Company Number: US-ASTRAZENECA-2007UW12218

PATIENT
  Age: 42 Year
  Sex: Male
  Weight: 90.7 kg

DRUGS (4)
  1. SEROQUEL [Suspect]
     Indication: SCHIZOPHRENIA
     Route: 048
     Dates: start: 20040901, end: 20050620
  2. SEROQUEL [Suspect]
     Dosage: 300 MG AND 100 MG TABLET DISPENSED
     Route: 048
     Dates: start: 20050511
  3. METFORMIN [Concomitant]
     Dosage: 500 MG AND 1000 MG DISPENSED
     Dates: start: 20051025
  4. LISINOPRIL [Concomitant]
     Dosage: 5 MG DISPENSED
     Dates: start: 20061108

REACTIONS (2)
  - PANCREATITIS [None]
  - TYPE 2 DIABETES MELLITUS [None]
